FAERS Safety Report 17083920 (Version 2)
Quarter: 2020Q1

REPORT INFORMATION
  Report Type: Report from Study
  Country: DO (occurrence: DO)
  Receive Date: 20191127
  Receipt Date: 20200311
  Transmission Date: 20200409
  Serious: Yes (Other)
  Sender: FDA-Public Use
  Company Number: PHHY2019DO025260

PATIENT
  Age: 31 Year
  Sex: Male
  Weight: 90 kg

DRUGS (2)
  1. GILENYA [Suspect]
     Active Substance: FINGOLIMOD HYDROCHLORIDE
     Indication: RELAPSING-REMITTING MULTIPLE SCLEROSIS
  2. GILENYA [Suspect]
     Active Substance: FINGOLIMOD HYDROCHLORIDE
     Indication: MULTIPLE SCLEROSIS
     Dosage: 0.5 MG, QD
     Route: 048
     Dates: start: 20190128

REACTIONS (16)
  - Gait disturbance [Unknown]
  - Memory impairment [Unknown]
  - Heart rate decreased [Unknown]
  - Visual impairment [Unknown]
  - Headache [Unknown]
  - Aspartate aminotransferase increased [Unknown]
  - Dizziness [Unknown]
  - Central nervous system lesion [Unknown]
  - Hepatic steatosis [Unknown]
  - Electrocardiogram QT prolonged [Recovered/Resolved]
  - Blood cholesterol increased [Recovering/Resolving]
  - Blood triglycerides increased [Unknown]
  - Nausea [Unknown]
  - Hepatic enzyme increased [Recovering/Resolving]
  - Cognitive disorder [Recovering/Resolving]
  - Hepatomegaly [Unknown]

NARRATIVE: CASE EVENT DATE: 20190128
